FAERS Safety Report 14412512 (Version 1)
Quarter: 2018Q1

REPORT INFORMATION
  Report Type: Spontaneous
  Country: US (occurrence: US)
  Receive Date: 20180119
  Receipt Date: 20180119
  Transmission Date: 20180509
  Serious: Yes (Death)
  Sender: FDA-Public Use
  Company Number: US-MALLINCKRODT-T201704902

PATIENT
  Age: 12 Year
  Sex: Female

DRUGS (1)
  1. FENTANYL TRANSDERMAL SYSTEM [Suspect]
     Active Substance: FENTANYL
     Indication: PRODUCT USED FOR UNKNOWN INDICATION
     Route: 048

REACTIONS (5)
  - Intentional product misuse [Fatal]
  - Incorrect route of drug administration [Fatal]
  - Toxicity to various agents [Fatal]
  - Bradycardia [Fatal]
  - Pyrexia [Fatal]

NARRATIVE: CASE EVENT DATE: 2016
